FAERS Safety Report 12615469 (Version 3)
Quarter: 2016Q3

REPORT INFORMATION
  Report Type: Spontaneous
  Country: JP (occurrence: JP)
  Receive Date: 20160802
  Receipt Date: 20160812
  Transmission Date: 20161109
  Serious: Yes (Other)
  Sender: FDA-Public Use
  Company Number: JP-009507513-1606JPN001581

PATIENT
  Age: 92 Year
  Sex: Male

DRUGS (32)
  1. EURAX [Concomitant]
     Active Substance: CROTAMITON
     Dosage: UNK
  2. LULICON [Concomitant]
     Dosage: UNK
  3. APLACE [Concomitant]
     Active Substance: TROXIPIDE
     Dosage: UNK
  4. DAPSONE. [Concomitant]
     Active Substance: DAPSONE
     Dosage: UNK
  5. AMARYL [Concomitant]
     Active Substance: GLIMEPIRIDE
     Indication: TYPE 2 DIABETES MELLITUS
     Dosage: 1 TABLET, UNK
     Dates: start: 20130201
  6. HIRUDOID [Concomitant]
     Active Substance: GLYCOSAMINOGLYCANS
     Dosage: UNK
  7. BARAMYCIN [Concomitant]
     Dosage: UNK
  8. AROTINOLOL HYDROCHLORIDE [Concomitant]
     Active Substance: AROTINOLOL HYDROCHLORIDE
     Dosage: UNK
  9. ONEALFA [Concomitant]
     Active Substance: ALFACALCIDOL
     Dosage: UNK
  10. RINDERON VG [Concomitant]
     Active Substance: BETAMETHASONE VALERATE\GENTAMICIN SULFATE
     Dosage: UNK
  11. ALLELOCK [Concomitant]
     Active Substance: OLOPATADINE HYDROCHLORIDE
     Dosage: UNK
  12. GLACTIV [Suspect]
     Active Substance: SITAGLIPTIN
     Dosage: 100 MG DAILY
     Route: 048
  13. ANTEBATE [Concomitant]
     Active Substance: BETAMETHASONE DIPROPIONATE
     Dosage: UNK
  14. GLACTIV [Suspect]
     Active Substance: SITAGLIPTIN
     Indication: TYPE 2 DIABETES MELLITUS
     Dosage: 50 MG DAILY
     Route: 048
     Dates: start: 20130710
  15. TALION OD [Concomitant]
     Dosage: UNK
  16. ANTEBATE [Concomitant]
     Active Substance: BETAMETHASONE DIPROPIONATE
     Dosage: UNK
  17. DERMOVATE [Concomitant]
     Active Substance: CLOBETASOL
     Dosage: UNK
  18. DIART [Concomitant]
     Active Substance: AZOSEMIDE
     Dosage: UNK
  19. RAMITECT [Concomitant]
     Dosage: UNK
  20. BISCOSAL [Concomitant]
     Dosage: UNK
  21. METFORMIN [Concomitant]
     Active Substance: METFORMIN HYDROCHLORIDE
     Dosage: UNK
  22. PREDNISOLONE. [Concomitant]
     Active Substance: PREDNISOLONE
     Dosage: UNK
  23. METFORMIN HYDROCHLORIDE. [Concomitant]
     Active Substance: METFORMIN HYDROCHLORIDE
     Dosage: UNK
  24. CELESTAMINE [Concomitant]
     Active Substance: BETAMETHASONE\DEXCHLORPHENIRAMINE MALEATE
     Dosage: UNK
  25. GLYMESASON [Concomitant]
     Active Substance: DEXAMETHASONE
     Dosage: UNK
  26. CRESTOR [Concomitant]
     Active Substance: ROSUVASTATIN CALCIUM
     Indication: TYPE 2 DIABETES MELLITUS
     Dosage: 1 TABLET, UNK, STRENGTH: 2.5 (UNITS NOT PROVIDED)
     Dates: start: 20130201
  27. URIADEC [Concomitant]
     Active Substance: TOPIROXOSTAT
     Dosage: UNK
  28. METGLUCO [Concomitant]
     Active Substance: METFORMIN HYDROCHLORIDE
     Indication: TYPE 2 DIABETES MELLITUS
     Dosage: 1 TABLET, UNK
     Dates: start: 20130221
  29. MAGMITT [Concomitant]
     Active Substance: MAGNESIUM OXIDE
     Dosage: UNK
  30. MINOMYCIN [Concomitant]
     Active Substance: MINOCYCLINE HYDROCHLORIDE
     Dosage: UNK
  31. XYZAL [Concomitant]
     Active Substance: LEVOCETIRIZINE DIHYDROCHLORIDE
     Dosage: UNK
  32. DIOVAN [Concomitant]
     Active Substance: VALSARTAN
     Dosage: UNK

REACTIONS (1)
  - Pemphigoid [Recovered/Resolved]

NARRATIVE: CASE EVENT DATE: 20131105
